FAERS Safety Report 24583021 (Version 2)
Quarter: 2025Q1

REPORT INFORMATION
  Report Type: Spontaneous
  Country: US (occurrence: US)
  Receive Date: 20241106
  Receipt Date: 20250226
  Transmission Date: 20250409
  Serious: No
  Sender: UCB
  Company Number: US-UCBSA-2024040785

PATIENT
  Age: 40 Year
  Sex: Female

DRUGS (10)
  1. LACOSAMIDE [Suspect]
     Active Substance: LACOSAMIDE
     Indication: Seizure
  2. LACOSAMIDE [Suspect]
     Active Substance: LACOSAMIDE
     Indication: Astrocytoma, low grade
  3. LACOSAMIDE [Suspect]
     Active Substance: LACOSAMIDE
     Indication: Off label use
  4. LEVETIRACETAM [Suspect]
     Active Substance: LEVETIRACETAM
     Indication: Seizure
  5. LEVETIRACETAM [Suspect]
     Active Substance: LEVETIRACETAM
     Indication: Astrocytoma, low grade
  6. LEVETIRACETAM [Suspect]
     Active Substance: LEVETIRACETAM
     Indication: Off label use
  7. CLOBAZAM [Suspect]
     Active Substance: CLOBAZAM
     Indication: Seizure
  8. CLOBAZAM [Suspect]
     Active Substance: CLOBAZAM
     Indication: Astrocytoma, low grade
  9. PROPOFOL [Concomitant]
     Active Substance: PROPOFOL
     Indication: Sedation
     Route: 042
  10. PROPOFOL [Concomitant]
     Active Substance: PROPOFOL
     Indication: Status epilepticus

REACTIONS (3)
  - Off label use [Unknown]
  - Multiple-drug resistance [Unknown]
  - Maternal exposure during pregnancy [Unknown]
